FAERS Safety Report 10550391 (Version 1)
Quarter: 2014Q4

REPORT INFORMATION
  Report Type: Spontaneous
  Country: US (occurrence: US)
  Receive Date: 20141029
  Receipt Date: 20141029
  Transmission Date: 20150529
  Serious: No
  Sender: FDA-Public Use
  Company Number: US-TEVA-433819USA

PATIENT
  Age: 50 Year
  Sex: Female

DRUGS (2)
  1. PROVIGIL [Suspect]
     Active Substance: MODAFINIL
     Indication: FIBROMYALGIA
  2. PROVIGIL [Suspect]
     Active Substance: MODAFINIL
     Indication: FATIGUE

REACTIONS (3)
  - Off label use [Unknown]
  - Visual acuity reduced [Unknown]
  - Drug effect decreased [Unknown]
